FAERS Safety Report 24880160 (Version 2)
Quarter: 2025Q1

REPORT INFORMATION
  Report Type: Report from Study
  Country: CA (occurrence: CA)
  Receive Date: 20250123
  Receipt Date: 20250305
  Transmission Date: 20250409
  Serious: Yes (Death, Other)
  Sender: TAKEDA
  Company Number: CA-TAKEDA-2025TUS006604

PATIENT
  Sex: Male

DRUGS (9)
  1. VEDOLIZUMAB [Suspect]
     Active Substance: VEDOLIZUMAB
     Indication: Colitis ulcerative
     Dates: start: 20241001, end: 20250117
  2. ROSUVASTATIN [Concomitant]
     Active Substance: ROSUVASTATIN
  3. PERINDOPRIL [Concomitant]
     Active Substance: PERINDOPRIL
  4. INDAPAMIDE [Concomitant]
     Active Substance: INDAPAMIDE
  5. AMLODIPINE [Concomitant]
     Active Substance: AMLODIPINE BESYLATE
  6. LOPERAMIDE [Concomitant]
     Active Substance: LOPERAMIDE
  7. SODIUM CHLORIDE [Concomitant]
     Active Substance: SODIUM CHLORIDE
  8. MOMETASONE [Concomitant]
     Active Substance: MOMETASONE
  9. PREDNISONE [Concomitant]
     Active Substance: PREDNISONE

REACTIONS (1)
  - Neoplasm malignant [Fatal]
